FAERS Safety Report 15547495 (Version 1)
Quarter: 2018Q4

REPORT INFORMATION
  Report Type: Report from Study
  Country: JP (occurrence: JP)
  Receive Date: 20181024
  Receipt Date: 20181024
  Transmission Date: 20190205
  Serious: Yes (Hospitalization)
  Sender: FDA-Public Use
  Company Number: JP-ASTRAZENECA-2017SE81964

PATIENT
  Age: 26509 Day
  Sex: Male
  Weight: 61 kg

DRUGS (6)
  1. TAGRISSO [Suspect]
     Active Substance: OSIMERTINIB
     Indication: NON-SMALL CELL LUNG CANCER
     Route: 048
     Dates: start: 20170106, end: 20170330
  2. TEARBALANCE [Concomitant]
     Active Substance: HYALURONATE SODIUM
     Route: 047
     Dates: start: 201607
  3. TAGRISSO [Suspect]
     Active Substance: OSIMERTINIB
     Indication: NON-SMALL CELL LUNG CANCER
     Route: 048
     Dates: start: 20170606, end: 20170801
  4. FLUMETHOLON [Concomitant]
     Active Substance: FLUOROMETHOLONE
     Route: 047
     Dates: start: 201607
  5. NAFTOPIDIL [Concomitant]
     Active Substance: NAFTOPIDIL
     Route: 048
     Dates: start: 201607
  6. AMLODIPINE BESILATE [Concomitant]
     Active Substance: AMLODIPINE BESYLATE
     Route: 048

REACTIONS (3)
  - Genital blister [Recovered/Resolved]
  - Dermatitis bullous [Recovering/Resolving]
  - Skin exfoliation [Unknown]

NARRATIVE: CASE EVENT DATE: 20170801
